FAERS Safety Report 25954888 (Version 1)
Quarter: 2025Q4

REPORT INFORMATION
  Report Type: Spontaneous
  Country: EU (occurrence: EU)
  Receive Date: 20251024
  Receipt Date: 20251024
  Transmission Date: 20260117
  Serious: Yes (Life-Threatening, Hospitalization)
  Sender: ROCHE
  Company Number: None

PATIENT
  Age: 53 Year
  Sex: Female
  Weight: 103.5 kg

DRUGS (4)
  1. HERCEPTIN [Suspect]
     Active Substance: TRASTUZUMAB
     Indication: HER2 positive breast cancer
     Dosage: 750 MG, 190.5 ML/H
     Route: 065
     Dates: start: 20251006, end: 20251006
  2. DEXAMETHASON TABLET  4MG / Brand name not specified [Concomitant]
     Dosage: TABLET, 4 MG (MILLIGRAM)
     Route: 048
  3. GRANISETRON TABLET 1MG / Brand name not specified [Concomitant]
     Dosage: TABLET, 1 MG (MILLIGRAM)
     Route: 048
  4. PERTUZUMAB INFOPL CONC 30 MG/ML / PERJETA INFVLST CONC 30 MG/ML FLAKON [Concomitant]
     Dosage: OPLOSSING FOR INFUSION, 30 MG/ML (MILLIGRAM PER MILLILITER)

REACTIONS (2)
  - Sepsis [Not Recovered/Not Resolved]
  - Interstitial lung disease [Not Recovered/Not Resolved]
